FAERS Safety Report 18858096 (Version 3)
Quarter: 2021Q1

REPORT INFORMATION
  Report Type: Spontaneous
  Country: JP (occurrence: JP)
  Receive Date: 20210208
  Receipt Date: 20210323
  Transmission Date: 20210420
  Serious: Yes (Death, Life-Threatening, Hospitalization, Other)
  Sender: FDA-Public Use
  Company Number: JP-JNJFOC-20210203286

PATIENT
  Age: 41 Year
  Sex: Male
  Weight: 53.3 kg

DRUGS (5)
  1. CASPOFUNGIN [Concomitant]
     Active Substance: CASPOFUNGIN
     Indication: PULMONARY MYCOSIS
  2. ITRIZOLE [Suspect]
     Active Substance: ITRACONAZOLE
     Indication: PULMONARY MYCOSIS
     Route: 048
  3. OXYGEN. [Concomitant]
     Active Substance: OXYGEN
     Route: 055
  4. ITRIZOLE [Suspect]
     Active Substance: ITRACONAZOLE
     Route: 042
  5. ITRIZOLE [Suspect]
     Active Substance: ITRACONAZOLE
     Indication: PULMONARY MYCOSIS
     Route: 042

REACTIONS (11)
  - Cardiomegaly [Unknown]
  - Stridor [Unknown]
  - Pericardial effusion [Unknown]
  - Disease progression [Unknown]
  - Liver function test increased [Unknown]
  - Drug level increased [Unknown]
  - Pneumonia [Unknown]
  - Chronic granulomatous disease [Unknown]
  - Anaemia [Unknown]
  - Cardiac failure congestive [Fatal]
  - Respiratory distress [Unknown]
